FAERS Safety Report 5818663-2 (Version None)
Quarter: 2008Q3

REPORT INFORMATION
  Report Type: 
  Country: None (occurrence: None)
  Receive Date: 20080721
  Receipt Date: 20080721
  Transmission Date: 20090109
  Serious: Yes (Hospitalization)
  Sender: FDA-Public Use
  Company Number: None

PATIENT
  Age: 24 Year
  Sex: Male
  Weight: 86.1834 kg

DRUGS (1)
  1. QUETIAPINE FUMARATE [Suspect]
     Indication: GENERALISED ANXIETY DISORDER
     Dosage: 150 MG PO QHS
     Route: 048
     Dates: start: 20080609

REACTIONS (1)
  - ABDOMINAL PAIN [None]
